FAERS Safety Report 7359081-8 (Version None)
Quarter: 2011Q1

REPORT INFORMATION
  Report Type: 
  Country: None (occurrence: None)
  Receive Date: 20110317
  Receipt Date: 20110310
  Transmission Date: 20110831
  Serious: Yes (Other)
  Sender: FDA-Public Use
  Company Number: US-BAYER-2011-005298

PATIENT
  Sex: Female
  Weight: 60.771 kg

DRUGS (1)
  1. MIRENA [Suspect]
     Indication: CONTRACEPTION
     Dosage: 20 ?G/D, CONT
     Dates: start: 20101229, end: 20110114

REACTIONS (3)
  - UTERINE PERFORATION [None]
  - ABDOMINAL PAIN [None]
  - DEVICE DISLOCATION [None]
